FAERS Safety Report 24573040 (Version 1)
Quarter: 2024Q4

REPORT INFORMATION
  Report Type: Spontaneous
  Country: FR (occurrence: FR)
  Receive Date: 20241101
  Receipt Date: 20241101
  Transmission Date: 20250115
  Serious: Yes (Death, Other)
  Sender: BRISTOL-MYERS SQUIBB COMPANY
  Company Number: None

PATIENT
  Age: 69 Year
  Sex: Male
  Weight: 94 kg

DRUGS (8)
  1. ADAGRASIB [Suspect]
     Active Substance: ADAGRASIB
     Indication: Lung adenocarcinoma
     Dosage: 3 CP MORNING AND EVENING
     Route: 048
     Dates: start: 20240907
  2. FOLIC ACID [Concomitant]
     Active Substance: FOLIC ACID
     Indication: Anaemia
     Dosage: 0.4 MG MORNING AND EVENING
     Route: 048
  3. KARDEGIC [Concomitant]
     Active Substance: ASPIRIN DL-LYSINE
     Indication: Myocardial infarction
     Dosage: MORNING, POWDER FOR ORAL SOLUTION IN SACHET-DOSE
     Route: 048
  4. ATENOLOL [Concomitant]
     Active Substance: ATENOLOL
     Indication: Myocardial infarction
     Dosage: MORNING
     Route: 048
  5. COVERAM [Concomitant]
     Active Substance: AMLODIPINE\PERINDOPRIL
     Indication: Hypertension
     Dosage: MORNING, STRENGTH: 10/5 MG
     Route: 048
  6. METFORMIN [Concomitant]
     Active Substance: METFORMIN HYDROCHLORIDE
     Indication: Type 2 diabetes mellitus
     Dosage: 850 MG MORNING, NOON AND EVENING
     Route: 048
  7. NITROGLYCERIN [Concomitant]
     Active Substance: NITROGLYCERIN
     Indication: Product used for unknown indication
     Dosage: 1 SPRAY/DAY, 0.30 MG/DOSE, ORAL SPRAY SOLUTION
     Route: 055
  8. ATORVASTATIN [Concomitant]
     Active Substance: ATORVASTATIN
     Indication: Product used for unknown indication
     Dosage: 0-0-1

REACTIONS (5)
  - General physical health deterioration [Not Recovered/Not Resolved]
  - Dizziness [Unknown]
  - Chills [Unknown]
  - Sudden death [Fatal]
  - Vomiting [Unknown]

NARRATIVE: CASE EVENT DATE: 20240926
